FAERS Safety Report 6746795-3 (Version None)
Quarter: 2010Q2

REPORT INFORMATION
  Report Type: 
  Country: None (occurrence: None)
  Receive Date: 20100528
  Receipt Date: 20100112
  Transmission Date: 20101027
  Serious: No
  Sender: FDA-Public Use
  Company Number: A0816780A

PATIENT
  Age: 71 Year
  Sex: Female

DRUGS (4)
  1. VENTOLIN [Suspect]
     Indication: DRUG USE FOR UNKNOWN INDICATION
     Dosage: 2PUFF FOUR TIMES PER DAY
     Route: 055
     Dates: start: 20091110, end: 20091112
  2. ANTIBIOTIC [Concomitant]
  3. PREDNISONE TAB [Concomitant]
  4. PREDNISONE TAB [Concomitant]

REACTIONS (5)
  - ABASIA [None]
  - BONE PAIN [None]
  - INSOMNIA [None]
  - MOBILITY DECREASED [None]
  - MUSCULOSKELETAL PAIN [None]
